FAERS Safety Report 4885008-4 (Version None)
Quarter: 2006Q1

REPORT INFORMATION
  Report Type: 
  Country: None (occurrence: None)
  Receive Date: 20060119
  Receipt Date: 20050331
  Transmission Date: 20060701
  Serious: Yes (Hospitalization)
  Sender: FDA-Public Use
  Company Number: US-MERCK-0504USA00211

PATIENT
  Age: 67 Year
  Sex: Male
  Weight: 67 kg

DRUGS (5)
  1. VIOXX [Suspect]
     Indication: OSTEOARTHRITIS
     Route: 048
     Dates: start: 20030101, end: 20040901
  2. VIOXX [Suspect]
     Indication: ARTHRALGIA
     Route: 048
     Dates: start: 20030101, end: 20040901
  3. TYLENOL (CAPLET) [Concomitant]
     Route: 065
     Dates: start: 20040101
  4. PREVACID [Concomitant]
     Route: 065
  5. ZOCOR [Concomitant]
     Route: 065
     Dates: start: 20030101

REACTIONS (19)
  - ANAEMIA [None]
  - ANGINA PECTORIS [None]
  - ANGIONEUROTIC OEDEMA [None]
  - ARTHRALGIA [None]
  - ATRIOVENTRICULAR BLOCK SECOND DEGREE [None]
  - CARDIAC FAILURE CONGESTIVE [None]
  - CHRONIC OBSTRUCTIVE PULMONARY DISEASE [None]
  - CORONARY ARTERY DISEASE [None]
  - CORONARY ARTERY THROMBOSIS [None]
  - GASTROINTESTINAL HAEMORRHAGE [None]
  - HEPATIC ENZYME INCREASED [None]
  - HYPERSENSITIVITY [None]
  - HYPERTENSION [None]
  - MYOCARDIAL INFARCTION [None]
  - NODAL RHYTHM [None]
  - PYURIA [None]
  - SICK SINUS SYNDROME [None]
  - SINUS BRADYCARDIA [None]
  - URINARY TRACT INFECTION [None]
